FAERS Safety Report 6153571-1 (Version None)
Quarter: 2009Q2

REPORT INFORMATION
  Report Type: 
  Country: None (occurrence: None)
  Receive Date: 20090413
  Receipt Date: 20090407
  Transmission Date: 20091009
  Serious: Yes (Other)
  Sender: FDA-Public Use
  Company Number: PHHY2009BR13471

PATIENT
  Age: 44 Year
  Sex: Female

DRUGS (1)
  1. EXFORGE [Suspect]
     Dosage: 160/5MG (4 TABLETS)
     Route: 048
     Dates: start: 20090330, end: 20090402

REACTIONS (1)
  - HYPERTENSION [None]
